FAERS Safety Report 4607173-6 (Version None)
Quarter: 2005Q1

REPORT INFORMATION
  Report Type: 
  Country: None (occurrence: None)
  Receive Date: 20050311
  Receipt Date: 20050311
  Transmission Date: 20050727
  Serious: No
  Sender: FDA-Public Use
  Company Number: None

PATIENT
  Sex: Female

DRUGS (2)
  1. PREDNISOLONE ACETATE [Suspect]
     Indication: CORNEAL TRANSPLANT
     Dosage: 1 GGTS  H   OD   QID
  2. POLYTRIM [Concomitant]

REACTIONS (1)
  - DRUG EFFECT DECREASED [None]
